FAERS Safety Report 5416760-7 (Version None)
Quarter: 2007Q3

REPORT INFORMATION
  Report Type: 
  Country: None (occurrence: None)
  Receive Date: 20070815
  Receipt Date: 20070815
  Transmission Date: 20080115
  Serious: Yes (Hospitalization)
  Sender: FDA-Public Use
  Company Number: None

PATIENT
  Age: 61 Year
  Sex: Female
  Weight: 83.0083 kg

DRUGS (1)
  1. CEPHALEXIN [Suspect]
     Indication: TOOTH INFECTION
     Dosage: 500 MG 1
     Dates: start: 20070811, end: 20070811

REACTIONS (4)
  - DIARRHOEA [None]
  - HYPERSENSITIVITY [None]
  - HYPERVENTILATION [None]
  - NAUSEA [None]
